FAERS Safety Report 12140849 (Version 1)
Quarter: 2016Q1

REPORT INFORMATION
  Report Type: Spontaneous
  Country: US (occurrence: None)
  Receive Date: 20160302
  Receipt Date: 20160302
  Transmission Date: 20160526
  Serious: Yes (Hospitalization)
  Sender: FDA-Public Use
  Company Number: None

PATIENT
  Age: 75 Year
  Sex: Male
  Weight: 68 kg

DRUGS (1)
  1. ALLOPURINOL 300MG COMMON BRANDS [Suspect]
     Active Substance: ALLOPURINOL
     Indication: PRODUCT USED FOR UNKNOWN INDICATION
     Dosage: 1 TABLET QD ORAL
     Route: 048

REACTIONS (9)
  - Toxic epidermal necrolysis [None]
  - Rash [None]
  - Rash generalised [None]
  - Peripheral swelling [None]
  - Mucous membrane disorder [None]
  - Mental status changes [None]
  - Skin exfoliation [None]
  - Stevens-Johnson syndrome [None]
  - Decreased appetite [None]

NARRATIVE: CASE EVENT DATE: 20160221
